FAERS Safety Report 9588247 (Version 1)
Quarter: 2013Q4

REPORT INFORMATION
  Report Type: Spontaneous
  Country: US (occurrence: US)
  Receive Date: 20131003
  Receipt Date: 20131003
  Transmission Date: 20140711
  Serious: No
  Sender: FDA-Public Use
  Company Number: US-AMGEN-USASP2012063389

PATIENT
  Age: 66 Year
  Sex: Male

DRUGS (10)
  1. ENBREL [Suspect]
     Indication: PRODUCT USED FOR UNKNOWN INDICATION
     Dosage: 50 MG, QWK
     Route: 058
  2. FISH OIL [Concomitant]
     Dosage: UNK
  3. ASPIRIN [Concomitant]
     Dosage: 325 MG, UNK
  4. CENTRUM SILVER                     /02363801/ [Concomitant]
     Dosage: UNK
  5. CALCIUM D                          /00944201/ [Concomitant]
     Dosage: 500 UNK, UNK
  6. METHOTREXATE [Concomitant]
     Dosage: 2.5 MG, UNK
  7. AMLODIPINE [Concomitant]
     Dosage: 5 MG, UNK
  8. LASIX                              /00032601/ [Concomitant]
     Dosage: 40 MG, UNK
  9. METOPROLOL [Concomitant]
     Dosage: 50 MG, UNK
  10. LISINOPRIL [Concomitant]
     Dosage: 10 MG, UNK

REACTIONS (1)
  - Condition aggravated [Unknown]
